FAERS Safety Report 25088580 (Version 1)
Quarter: 2025Q1

REPORT INFORMATION
  Report Type: Spontaneous
  Country: US (occurrence: US)
  Receive Date: 20250318
  Receipt Date: 20250318
  Transmission Date: 20250409
  Serious: Yes (Hospitalization)
  Sender: MYLAN
  Company Number: US-MYLANLABS-2025M1021652

PATIENT
  Age: 26 Year
  Sex: Female

DRUGS (6)
  1. TRANEXAMIC ACID [Suspect]
     Active Substance: TRANEXAMIC ACID
     Indication: Haemorrhage prophylaxis
  2. NOREPINEPHRINE BITARTRATE [Suspect]
     Active Substance: NOREPINEPHRINE BITARTRATE
     Indication: Product used for unknown indication
  3. LACTATED RINGERS SOLUTION [Suspect]
     Active Substance: CALCIUM CHLORIDE\POTASSIUM CHLORIDE\SODIUM CHLORIDE\SODIUM LACTATE
     Indication: Product used for unknown indication
  4. CALCIUM CHLORIDE [Suspect]
     Active Substance: CALCIUM CHLORIDE
     Indication: Product used for unknown indication
  5. OXYTOCIN [Concomitant]
     Active Substance: OXYTOCIN
     Indication: Product used for unknown indication
  6. OXYTOCIN [Concomitant]
     Active Substance: OXYTOCIN

REACTIONS (3)
  - Drug ineffective [Unknown]
  - Maternal exposure during pregnancy [Recovered/Resolved]
  - Normal newborn [Recovered/Resolved]
